FAERS Safety Report 20350787 (Version 1)
Quarter: 2022Q1

REPORT INFORMATION
  Report Type: Spontaneous
  Country: US (occurrence: None)
  Receive Date: 20220117
  Receipt Date: 20220117
  Transmission Date: 20220423
  Serious: Yes (Hospitalization)
  Sender: FDA-Public Use
  Company Number: None

PATIENT
  Age: 73 Year
  Sex: Female

DRUGS (2)
  1. BETASERON [Suspect]
     Active Substance: INTERFERON BETA-1B
  2. DIMETHYL FUMARATE [Suspect]
     Active Substance: DIMETHYL FUMARATE

REACTIONS (2)
  - Flushing [None]
  - Headache [None]

NARRATIVE: CASE EVENT DATE: 20220114
